FAERS Safety Report 6044445-5 (Version None)
Quarter: 2009Q1

REPORT INFORMATION
  Report Type: 
  Country: None (occurrence: None)
  Receive Date: 20090120
  Receipt Date: 20090108
  Transmission Date: 20090719
  Serious: Yes (Other)
  Sender: FDA-Public Use
  Company Number: US-PFIZER INC-2008045362

PATIENT
  Sex: Male
  Weight: 86.168 kg

DRUGS (4)
  1. VIAGRA [Suspect]
     Indication: ERECTILE DYSFUNCTION
     Dosage: UNK
     Route: 048
     Dates: start: 19980330
  2. BENICAR HCT [Concomitant]
     Dosage: UNK
     Dates: start: 20010101
  3. TOPROL-XL [Concomitant]
     Dosage: 50 MG, UNK
     Dates: start: 20010101
  4. GLUCOPHAGE [Concomitant]
     Dosage: 500 MG, UNK
     Dates: start: 20010101

REACTIONS (4)
  - ANXIETY [None]
  - BLINDNESS [None]
  - OPTIC ISCHAEMIC NEUROPATHY [None]
  - OPTIC NEUROPATHY [None]
